FAERS Safety Report 5325130-1 (Version None)
Quarter: 2007Q2

REPORT INFORMATION
  Report Type: 
  Country: None (occurrence: None)
  Receive Date: 20070511
  Receipt Date: 20070511
  Transmission Date: 20071010
  Serious: Yes (Other)
  Sender: FDA-Public Use
  Company Number: None

PATIENT
  Sex: Male
  Weight: 86.637 kg

DRUGS (7)
  1. SIMVASTATIN [Suspect]
     Indication: HYPERLIPIDAEMIA
     Dosage: 80 MG ONCE/DAY PO
     Route: 048
     Dates: start: 20040601, end: 20060922
  2. SERTRALINE [Concomitant]
  3. ASPIRIN [Concomitant]
  4. PANTOPRAZOLE SODIUM [Concomitant]
  5. ADVAIR DISKUS 250/50 [Concomitant]
  6. MONTELEUKAST [Concomitant]
  7. FLUTICASONE PROPIONATE [Concomitant]

REACTIONS (5)
  - EOSINOPHILIA [None]
  - FATIGUE [None]
  - MYALGIA [None]
  - PROTEINURIA [None]
  - TRANSAMINASES INCREASED [None]
